FAERS Safety Report 16653222 (Version 1)
Quarter: 2019Q3

REPORT INFORMATION
  Report Type: Spontaneous
  Country: US (occurrence: US)
  Receive Date: 20190731
  Receipt Date: 20190731
  Transmission Date: 20191004
  Serious: Yes (Other)
  Sender: FDA-Public Use
  Company Number: PHHY2019US174958

PATIENT
  Age: 20 Year
  Sex: Male

DRUGS (1)
  1. VALPROIC ACID. [Suspect]
     Active Substance: VALPROIC ACID
     Indication: SEIZURE
     Dosage: UNK
     Route: 065
     Dates: start: 201710

REACTIONS (10)
  - Acute hepatic failure [Unknown]
  - Mental status changes [Unknown]
  - Nausea [Unknown]
  - Jaundice [Unknown]
  - Coagulopathy [Unknown]
  - Drug-induced liver injury [Unknown]
  - Hepatic steatosis [Unknown]
  - Fatigue [Unknown]
  - Vomiting [Unknown]
  - Necrosis [Unknown]

NARRATIVE: CASE EVENT DATE: 201801
